FAERS Safety Report 10258543 (Version 2)
Quarter: 2014Q3

REPORT INFORMATION
  Report Type: Spontaneous
  Country: GR (occurrence: GR)
  Receive Date: 20140625
  Receipt Date: 20140728
  Transmission Date: 20150326
  Serious: Yes (Other)
  Sender: FDA-Public Use
  Company Number: PHHY2014GR077576

PATIENT
  Age: 35 Year
  Sex: Female

DRUGS (1)
  1. DESFERAL INF. [Suspect]
     Active Substance: DEFEROXAMINE MESYLATE
     Indication: THALASSAEMIA
     Dosage: UKN
     Route: 041

REACTIONS (1)
  - Abscess limb [Unknown]
